FAERS Safety Report 12663568 (Version 1)
Quarter: 2016Q3

REPORT INFORMATION
  Report Type: Spontaneous
  Country: IT (occurrence: IT)
  Receive Date: 20160818
  Receipt Date: 20160818
  Transmission Date: 20161109
  Serious: Yes (Other)
  Sender: FDA-Public Use
  Company Number: IT-ASTRAZENECA-2016SE87190

PATIENT
  Age: 22175 Day
  Sex: Male

DRUGS (8)
  1. METFORMIN [Concomitant]
     Active Substance: METFORMIN HYDROCHLORIDE
     Dosage: 2000.0MG UNKNOWN
     Route: 048
  2. FORXIGA [Suspect]
     Active Substance: DAPAGLIFLOZIN
     Indication: TYPE 2 DIABETES MELLITUS
     Route: 048
  3. EZETROL [Concomitant]
     Active Substance: EZETIMIBE
     Route: 048
  4. TRIATEC [Concomitant]
     Active Substance: RAMIPRIL
     Dosage: 5.0MG UNKNOWN
     Route: 048
  5. CARDIOASPIRIN (ASA) [Concomitant]
     Active Substance: ASPIRIN
  6. AMARYL [Concomitant]
     Active Substance: GLIMEPIRIDE
     Route: 048
  7. OMEPRAZEN [Concomitant]
     Active Substance: OMEPRAZOLE
     Dosage: 10.0MG UNKNOWN
     Route: 048
  8. ESKIM [Concomitant]
     Active Substance: OMEGA-3 FATTY ACIDS
     Dosage: 2000.0MG UNKNOWN
     Route: 048

REACTIONS (2)
  - Urinary retention [Recovering/Resolving]
  - Urinary tract infection [Recovering/Resolving]

NARRATIVE: CASE EVENT DATE: 20160117
